FAERS Safety Report 7846751-8 (Version None)
Quarter: 2011Q4

REPORT INFORMATION
  Report Type: 
  Country: None (occurrence: None)
  Receive Date: 20111025
  Receipt Date: 20111018
  Transmission Date: 20120403
  Serious: Yes (Death, Hospitalization)
  Sender: FDA-Public Use
  Company Number: PHHO2011US07704

PATIENT
  Sex: Male
  Weight: 83.2 kg

DRUGS (14)
  1. ZOLEDRONIC [Suspect]
     Indication: PROSTATE CANCER
     Dosage: 4MG ONCE A MONTH
     Route: 042
     Dates: start: 20101012
  2. VITAMIN D [Concomitant]
     Dosage: 400 IU, QD
     Route: 048
  3. TRILIPIX [Concomitant]
  4. AMBIEN [Concomitant]
  5. VICODIN [Concomitant]
  6. LUPRON [Concomitant]
  7. MS CONTIN [Concomitant]
  8. MULTI-VITAMINS [Concomitant]
  9. ZOLEDRONIC [Suspect]
     Dosage: 4MG ONCE A MONTH
     Route: 042
     Dates: start: 20110222
  10. CALCIUM CARBONATE [Concomitant]
     Dosage: 500 MG, QD
     Route: 048
  11. PREVACID [Concomitant]
  12. MILK OF MAGNESIA TAB [Concomitant]
  13. ZOLEDRONIC [Suspect]
     Dosage: 4MG ONCE A MONTH
     Route: 042
     Dates: start: 20110916, end: 20110916
  14. OXYCONTIN [Concomitant]

REACTIONS (6)
  - ARRHYTHMIA [None]
  - NAUSEA [None]
  - DEATH [None]
  - ABDOMINAL PAIN [None]
  - ABDOMINAL DISTENSION [None]
  - VOMITING [None]
